FAERS Safety Report 16333751 (Version 1)
Quarter: 2019Q2

REPORT INFORMATION
  Report Type: Spontaneous
  Country: JP (occurrence: JP)
  Receive Date: 20190520
  Receipt Date: 20190520
  Transmission Date: 20190711
  Serious: Yes (Hospitalization)
  Sender: FDA-Public Use
  Company Number: JP-FRESENIUS KABI-FK201905708

PATIENT
  Age: 18 Year
  Sex: Female

DRUGS (11)
  1. METHYLPREDNISOLONE (MANUFACTURER UNKNOWN) [Suspect]
     Active Substance: METHYLPREDNISOLONE
     Indication: SERPIGINOUS CHOROIDITIS
     Route: 065
  2. PREDNISONE. [Suspect]
     Active Substance: PREDNISONE
     Indication: SERPIGINOUS CHOROIDITIS
     Route: 048
  3. TRIAMCINOLONE ACETONIDE. [Suspect]
     Active Substance: TRIAMCINOLONE ACETONIDE
     Indication: SERPIGINOUS CHOROIDITIS
     Dosage: ADMINISTERED TO LEFT EYE AND THEN TO THE RIGHT EYE
     Route: 065
  4. BETAMETHASONE. [Suspect]
     Active Substance: BETAMETHASONE
     Indication: SERPIGINOUS CHOROIDITIS
     Route: 065
  5. TRIAMCINOLONE ACETONIDE. [Suspect]
     Active Substance: TRIAMCINOLONE ACETONIDE
     Indication: SERPIGINOUS CHOROIDITIS
     Dosage: ADMINISTERED IN RIGHT EYE ON 34TH DAY
  6. CICLOSPORIN [Suspect]
     Active Substance: CYCLOSPORINE
     Indication: SERPIGINOUS CHOROIDITIS
     Route: 048
  7. PREDNISONE. [Suspect]
     Active Substance: PREDNISONE
     Indication: SERPIGINOUS CHOROIDITIS
     Route: 065
  8. METHYLPREDNISOLONE (MANUFACTURER UNKNOWN) [Suspect]
     Active Substance: METHYLPREDNISOLONE
     Indication: SERPIGINOUS CHOROIDITIS
  9. ADALIMUMAB [Suspect]
     Active Substance: ADALIMUMAB
     Route: 058
  10. BETAMETHASONE. [Suspect]
     Active Substance: BETAMETHASONE
     Indication: SERPIGINOUS CHOROIDITIS
     Route: 065
  11. ADALIMUMAB [Suspect]
     Active Substance: ADALIMUMAB
     Indication: SERPIGINOUS CHOROIDITIS
     Dosage: STARTED ON THE 27TH DAY.
     Route: 058

REACTIONS (2)
  - Product use issue [Unknown]
  - Treatment failure [Recovered/Resolved]
